FAERS Safety Report 26207709 (Version 1)
Quarter: 2025Q4

REPORT INFORMATION
  Report Type: Other
  Country: GB (occurrence: GB)
  Receive Date: 20251229
  Receipt Date: 20251229
  Transmission Date: 20260117
  Serious: Yes (Life-Threatening, Hospitalization, Other)
  Sender: MACLEODS
  Company Number: None

PATIENT

DRUGS (1)
  1. LACOSAMIDE [Suspect]
     Active Substance: LACOSAMIDE
     Indication: Seizure
     Dosage: 50MG OD
     Dates: end: 20251218

REACTIONS (2)
  - Atrioventricular block complete [Not Recovered/Not Resolved]
  - Fall [Unknown]

NARRATIVE: CASE EVENT DATE: 20251215
